FAERS Safety Report 17579902 (Version 3)
Quarter: 2020Q2

REPORT INFORMATION
  Report Type: Report from Study
  Country: US (occurrence: US)
  Receive Date: 20200325
  Receipt Date: 20200626
  Transmission Date: 20200713
  Serious: Yes (Other)
  Sender: FDA-Public Use
  Company Number: US-JNJFOC-20200325003

PATIENT
  Age: 27 Year
  Sex: Female
  Weight: 48.58 kg

DRUGS (1)
  1. INFLIXIMAB, RECOMBINANT [Suspect]
     Active Substance: INFLIXIMAB
     Indication: INFLAMMATORY BOWEL DISEASE
     Route: 042
     Dates: start: 20060522

REACTIONS (1)
  - Abortion spontaneous [Recovered/Resolved]

NARRATIVE: CASE EVENT DATE: 20200126
